FAERS Safety Report 12683513 (Version 2)
Quarter: 2016Q4

REPORT INFORMATION
  Report Type: Spontaneous
  Country: US (occurrence: US)
  Receive Date: 20160825
  Receipt Date: 20161012
  Transmission Date: 20170207
  Serious: No
  Sender: FDA-Public Use
  Company Number: US-BEH-2016072681

PATIENT
  Sex: Female
  Weight: 89.34 kg

DRUGS (24)
  1. LIDOCAINE/PRILOCAINE [Concomitant]
     Active Substance: LIDOCAINE\PRILOCAINE
  2. KLONOPIN [Concomitant]
     Active Substance: CLONAZEPAM
  3. STOOL SOFTENER (DOCUSATE CALCIUM) [Concomitant]
     Active Substance: DOCUSATE CALCIUM
  4. PROBIOTIC                          /06395501/ [Concomitant]
     Active Substance: BIFIDOBACTERIUM ANIMALIS SUBSP. LACTIS
  5. VIIBRYD [Concomitant]
     Active Substance: VILAZODONE HYDROCHLORIDE
  6. ZANTAC [Concomitant]
     Active Substance: RANITIDINE HYDROCHLORIDE
  7. HIZENTRA [Suspect]
     Active Substance: HUMAN IMMUNOGLOBULIN G
     Indication: IMMUNODEFICIENCY COMMON VARIABLE
     Dosage: UNK
     Route: 058
  8. HIZENTRA [Suspect]
     Active Substance: HUMAN IMMUNOGLOBULIN G
     Dosage: UNK
     Route: 058
  9. NORCO [Concomitant]
     Active Substance: ACETAMINOPHEN\HYDROCODONE BITARTRATE
  10. HIZENTRA [Suspect]
     Active Substance: HUMAN IMMUNOGLOBULIN G
     Dosage: 9 G, AS DIRECTED
     Route: 058
     Dates: start: 20110207
  11. VENTOLIN HFA [Concomitant]
     Active Substance: ALBUTEROL SULFATE
  12. NAPROXEN. [Concomitant]
     Active Substance: NAPROXEN
  13. ZOCOR [Concomitant]
     Active Substance: SIMVASTATIN
  14. SINGULAIR [Concomitant]
     Active Substance: MONTELUKAST SODIUM
  15. EPIPEN [Concomitant]
     Active Substance: EPINEPHRINE
  16. KEFLEX [Concomitant]
     Active Substance: CEPHALEXIN
  17. TYLENOL [Concomitant]
     Active Substance: ACETAMINOPHEN
  18. DIPHENHYDRAMINE. [Concomitant]
     Active Substance: DIPHENHYDRAMINE
  19. CYCLOBENZAPRINE [Concomitant]
     Active Substance: CYCLOBENZAPRINE
  20. MOBIC [Concomitant]
     Active Substance: MELOXICAM
  21. ABILIFY [Concomitant]
     Active Substance: ARIPIPRAZOLE
  22. TRAZODONE [Concomitant]
     Active Substance: TRAZODONE HYDROCHLORIDE
  23. LOSARTIN [Concomitant]
     Active Substance: LOSARTAN
  24. LOPRESSOR [Concomitant]
     Active Substance: METOPROLOL TARTRATE

REACTIONS (5)
  - Fatigue [Recovered/Resolved]
  - Throat tightness [Recovered/Resolved]
  - Pruritus generalised [Recovered/Resolved]
  - Erythema [Recovered/Resolved]
  - Drug hypersensitivity [Recovered/Resolved]
